FAERS Safety Report 25483371 (Version 1)
Quarter: 2025Q2

REPORT INFORMATION
  Report Type: Spontaneous
  Country: US (occurrence: US)
  Receive Date: 20250626
  Receipt Date: 20250626
  Transmission Date: 20250716
  Serious: No
  Sender: ELI LILLY AND COMPANY
  Company Number: US-ELI_LILLY_AND_COMPANY-US202506023444

PATIENT
  Age: 51 Year
  Sex: Female

DRUGS (3)
  1. VERZENIO [Suspect]
     Active Substance: ABEMACICLIB
     Indication: Breast cancer female
     Route: 065
     Dates: start: 20250123
  2. VERZENIO [Suspect]
     Active Substance: ABEMACICLIB
     Route: 065
  3. VERZENIO [Suspect]
     Active Substance: ABEMACICLIB
     Route: 065

REACTIONS (3)
  - Brain fog [Not Recovered/Not Resolved]
  - Diarrhoea [Recovering/Resolving]
  - Fatigue [Not Recovered/Not Resolved]
